FAERS Safety Report 23622095 (Version 2)
Quarter: 2024Q1

REPORT INFORMATION
  Report Type: Spontaneous
  Country: JP (occurrence: JP)
  Receive Date: 20240312
  Receipt Date: 20240329
  Transmission Date: 20240409
  Serious: No
  Sender: FDA-Public Use
  Company Number: JP-PFIZER INC-PV202400022321

PATIENT
  Sex: Female

DRUGS (1)
  1. ENBREL [Suspect]
     Active Substance: ETANERCEPT
     Dosage: 25 MG, ONCE A WEEK
     Route: 058
     Dates: start: 202310

REACTIONS (3)
  - Device issue [Unknown]
  - Injection site pain [Unknown]
  - Injection site erythema [Unknown]
